FAERS Safety Report 11573410 (Version 2)
Quarter: 2015Q4

REPORT INFORMATION
  Report Type: Spontaneous
  Country: DE (occurrence: DE)
  Receive Date: 20150929
  Receipt Date: 20151008
  Transmission Date: 20160304
  Serious: Yes (Hospitalization, Other)
  Sender: FDA-Public Use
  Company Number: DE-TEVA-595614GER

PATIENT
  Age: 51 Year
  Sex: Female
  Weight: 124 kg

DRUGS (6)
  1. PREDNISOLON [Concomitant]
     Active Substance: PREDNISOLONE
     Indication: RHEUMATOID ARTHRITIS
     Dosage: 5 MILLIGRAM DAILY;
     Route: 048
     Dates: start: 2009
  2. PANTOPRAZOL [Concomitant]
     Active Substance: PANTOPRAZOLE SODIUM
     Indication: GASTROOESOPHAGEAL REFLUX DISEASE
     Dosage: 40 MILLIGRAM DAILY;
     Route: 048
  3. SPIRONOLACTONE. [Concomitant]
     Active Substance: SPIRONOLACTONE
     Dosage: 50 MILLIGRAM DAILY;
  4. LEFLUNOMID [Suspect]
     Active Substance: LEFLUNOMIDE
     Indication: RHEUMATOID ARTHRITIS
     Dosage: 20 MILLIGRAM DAILY;
     Route: 048
     Dates: start: 2009, end: 20150910
  5. TILIDIN 100/8 MG [Concomitant]
     Indication: PAIN
     Dosage: 2 DOSAGE FORMS DAILY; 1 DF (=DOSAGE FORM): 100 MG TILIDINE HYDROCHLORIDE/8 MG NALOXONE HYDROCHLORIDE
     Route: 048
     Dates: start: 2014
  6. TORASEMID [Concomitant]
     Active Substance: TORSEMIDE
     Indication: OEDEMA
     Dosage: 10 MILLIGRAM DAILY;
     Route: 048
     Dates: start: 201505

REACTIONS (2)
  - Pericardial effusion [Not Recovered/Not Resolved]
  - Pulmonary hypertension [Not Recovered/Not Resolved]

NARRATIVE: CASE EVENT DATE: 201505
